FAERS Safety Report 5072813-7 (Version None)
Quarter: 2006Q3

REPORT INFORMATION
  Report Type: 
  Country: None (occurrence: None)
  Receive Date: 20060802
  Receipt Date: 20060724
  Transmission Date: 20061208
  Serious: Yes (Hospitalization, Other)
  Sender: FDA-Public Use
  Company Number: FR-2006-020527

PATIENT
  Age: 45 Year
  Sex: Male
  Weight: 85 kg

DRUGS (4)
  1. SOTALOL HYDROCHLORIDE [Suspect]
     Dosage: 240 MG (2X80MG TABS AM/1X80MGPM), ORAL
     Route: 048
     Dates: start: 20030101, end: 20060623
  2. FLECAINIDE ACETATE [Suspect]
     Dosage: 100 MG, 2X/DAY, ORAL
     Route: 048
     Dates: end: 20060623
  3. PREVISCAN              (FLUINDIONE) [Concomitant]
  4. ATACAND [Concomitant]

REACTIONS (12)
  - ATRIOVENTRICULAR BLOCK FIRST DEGREE [None]
  - BUNDLE BRANCH BLOCK RIGHT [None]
  - CARDIAC ARREST [None]
  - CONVULSION [None]
  - DEPRESSED LEVEL OF CONSCIOUSNESS [None]
  - HYPERCREATININAEMIA [None]
  - LEUKOCYTOSIS [None]
  - METABOLIC ACIDOSIS [None]
  - MYDRIASIS [None]
  - RESPIRATORY ARREST [None]
  - THROMBOCYTOPENIA [None]
  - VENTRICULAR TACHYCARDIA [None]
